FAERS Safety Report 4992251-2 (Version None)
Quarter: 2006Q2

REPORT INFORMATION
  Report Type: 
  Country: None (occurrence: None)
  Receive Date: 20060504
  Receipt Date: 20060424
  Transmission Date: 20061013
  Serious: Yes (Hospitalization)
  Sender: FDA-Public Use
  Company Number: FR-ROCHE-445759

PATIENT
  Age: 41 Year
  Sex: Male

DRUGS (4)
  1. FUZEON [Suspect]
     Dosage: FORM REPORTED AS INJECTABLE SOLUTION.
     Route: 058
     Dates: start: 20060202, end: 20060323
  2. NORVIR [Suspect]
     Route: 048
     Dates: end: 20060413
  3. KALETRA [Suspect]
     Route: 048
     Dates: end: 20060323
  4. TELZIR [Suspect]
     Route: 048
     Dates: end: 20060323

REACTIONS (2)
  - DRUG TOXICITY [None]
  - ENCEPHALOPATHY [None]
